FAERS Safety Report 14573293 (Version 4)
Quarter: 2021Q1

REPORT INFORMATION
  Report Type: Spontaneous
  Country: US (occurrence: US)
  Receive Date: 20180226
  Receipt Date: 20210114
  Transmission Date: 20210419
  Serious: Yes (Hospitalization)
  Sender: FDA-Public Use
  Company Number: US-PFIZER INC-2018078412

PATIENT
  Age: 73 Year
  Sex: Female
  Weight: 62 kg

DRUGS (3)
  1. IBRANCE [Suspect]
     Active Substance: PALBOCICLIB
     Indication: SKIN CANCER
     Dosage: 125 MG, CYCLIC(ONCE CAPSULE DAILY 21 DAYS ON AND 7 DAYS OFF)
     Route: 048
     Dates: start: 20171128
  2. IBRANCE [Suspect]
     Active Substance: PALBOCICLIB
     Dosage: 100 MG
  3. IBRANCE [Suspect]
     Active Substance: PALBOCICLIB
     Indication: ECCRINE CARCINOMA
     Dosage: 125 MG, CYCLIC (21 DAYS THEN 7 DAYS OFF)
     Route: 048
     Dates: start: 201712

REACTIONS (2)
  - Off label use [Unknown]
  - Chest pain [Recovering/Resolving]

NARRATIVE: CASE EVENT DATE: 20171128
